FAERS Safety Report 10760350 (Version 1)
Quarter: 2015Q1

REPORT INFORMATION
  Report Type: Spontaneous
  Country: NZ (occurrence: NZ)
  Receive Date: 20150204
  Receipt Date: 20150204
  Transmission Date: 20150721
  Serious: Yes (Death, Other)
  Sender: FDA-Public Use
  Company Number: NZ-009507513-1501NZL010963

PATIENT
  Age: 83 Year
  Sex: Male

DRUGS (4)
  1. SIMVASTATIN. [Suspect]
     Active Substance: SIMVASTATIN
     Dosage: 40 MG, UNK
     Route: 048
     Dates: start: 20091213, end: 20091231
  2. AMOXICILLIN (+) CLAVULANIC ACID [Suspect]
     Active Substance: AMOXICILLIN\CLAVULANIC ACID
     Dosage: 3 DF, UNK
     Route: 048
     Dates: start: 20091229, end: 20091231
  3. METRONIDAZOLE. [Suspect]
     Active Substance: METRONIDAZOLE
     Dosage: 500 MG, UNK
     Route: 042
     Dates: start: 200912, end: 200912
  4. CEFUROXIME. [Suspect]
     Active Substance: CEFUROXIME
     Dosage: 4.5 GM, UNK
     Route: 042
     Dates: start: 20091219, end: 20091222

REACTIONS (2)
  - Hepatic failure [Fatal]
  - Acute kidney injury [Fatal]

NARRATIVE: CASE EVENT DATE: 201001
